FAERS Safety Report 12247525 (Version 2)
Quarter: 2016Q2

REPORT INFORMATION
  Report Type: Spontaneous
  Country: US (occurrence: US)
  Receive Date: 20160407
  Receipt Date: 20160526
  Transmission Date: 20160815
  Serious: No
  Sender: FDA-Public Use
  Company Number: US-BIODELIVERY SCIENCES INTERNATIONAL, INC.-US-2016BDS000006

PATIENT

DRUGS (2)
  1. LISINOPRIL AND HYDROCHLORTIAZIDE [Concomitant]
     Indication: HYPERTENSION
     Dosage: 10/12.5 MG, QD
     Route: 048
     Dates: start: 201511
  2. BUNAVAIL [Suspect]
     Active Substance: BUPRENORPHINE HYDROCHLORIDE\NALOXONE HYDROCHLORIDE DIHYDRATE
     Indication: PAIN
     Dosage: 6.3/1.0 MG, BID
     Route: 002
     Dates: start: 20160119

REACTIONS (2)
  - Nausea [Not Recovered/Not Resolved]
  - Dizziness [Not Recovered/Not Resolved]

NARRATIVE: CASE EVENT DATE: 20160120
